FAERS Safety Report 23666687 (Version 7)
Quarter: 2025Q2

REPORT INFORMATION
  Report Type: Report from Study
  Country: IN (occurrence: IN)
  Receive Date: 20240325
  Receipt Date: 20250630
  Transmission Date: 20250717
  Serious: Yes (Other)
  Sender: NOVARTIS
  Company Number: IN-002147023-NVSC2024IN060927

PATIENT
  Sex: Female

DRUGS (4)
  1. RIBOCICLIB [Suspect]
     Active Substance: RIBOCICLIB
     Indication: Breast cancer metastatic
     Dosage: 400 MG, QD
     Route: 048
     Dates: start: 20220829
  2. RIBOCICLIB [Suspect]
     Active Substance: RIBOCICLIB
     Indication: Hormone receptor positive HER2 negative breast cancer
     Dosage: 600 MG, QD
     Route: 048
  3. RIBOCICLIB [Suspect]
     Active Substance: RIBOCICLIB
     Dosage: 200 MG, QD (REDUCED DOSE)
     Route: 048
  4. RIBOCICLIB [Suspect]
     Active Substance: RIBOCICLIB
     Dosage: 400 MG, QD
     Route: 048

REACTIONS (10)
  - Metastases to lymph nodes [Unknown]
  - Metastases to muscle [Unknown]
  - Pneumothorax [Unknown]
  - Metastases to lung [Unknown]
  - Metastases to soft tissue [Unknown]
  - Metastases to bone [Unknown]
  - Pleural effusion [Unknown]
  - Pancreatic cyst [Unknown]
  - Retracted nipple [Unknown]
  - Product dose omission issue [Unknown]
